FAERS Safety Report 10812921 (Version 1)
Quarter: 2015Q1

REPORT INFORMATION
  Report Type: Report from Study
  Country: US (occurrence: US)
  Receive Date: 20150218
  Receipt Date: 20150218
  Transmission Date: 20150721
  Serious: No
  Sender: FDA-Public Use
  Company Number: US-ABBVIE-14K-163-1272326-00

PATIENT
  Age: 39 Year
  Sex: Female

DRUGS (8)
  1. GABAPENTIN. [Concomitant]
     Active Substance: GABAPENTIN
     Indication: PAIN
  2. HUMIRA [Suspect]
     Active Substance: ADALIMUMAB
     Indication: ANKYLOSING SPONDYLITIS
     Dates: start: 20140715, end: 20140715
  3. VITAMIN D [Concomitant]
     Active Substance: CHOLECALCIFEROL
     Indication: VITAMIN D DECREASED
  4. HUMIRA [Suspect]
     Active Substance: ADALIMUMAB
     Dates: start: 20140805
  5. ENDOMETHASON [Suspect]
     Active Substance: DEXAMETHASONE\HYDROCORTISONE ACETATE\PARAFORMALDEHYDE
     Indication: ARTHRALGIA
     Dates: start: 201407, end: 201408
  6. ENDOMETHASON [Suspect]
     Active Substance: DEXAMETHASONE\HYDROCORTISONE ACETATE\PARAFORMALDEHYDE
     Indication: SWELLING
  7. HUMIRA [Suspect]
     Active Substance: ADALIMUMAB
     Dates: start: 20140729, end: 20140729
  8. SAVELLA [Concomitant]
     Active Substance: MILNACIPRAN HYDROCHLORIDE
     Indication: FIBROMYALGIA

REACTIONS (6)
  - Injection site pain [Unknown]
  - Injection site pain [Recovered/Resolved]
  - Joint swelling [Unknown]
  - Drug ineffective [Unknown]
  - Injection site papule [Recovered/Resolved]
  - Arthralgia [Not Recovered/Not Resolved]

NARRATIVE: CASE EVENT DATE: 201407
